FAERS Safety Report 6069700-4 (Version None)
Quarter: 2009Q1

REPORT INFORMATION
  Report Type: 
  Country: None (occurrence: None)
  Receive Date: 20090209
  Receipt Date: 20090129
  Transmission Date: 20090719
  Serious: Yes (Hospitalization)
  Sender: FDA-Public Use
  Company Number: DE-BAXTER-2009BH001573

PATIENT
  Age: 79 Year
  Sex: Male

DRUGS (3)
  1. GAMMAGARD LIQUID [Suspect]
     Indication: CHRONIC LYMPHOCYTIC LEUKAEMIA
     Route: 065
     Dates: start: 20080925, end: 20080925
  2. GAMMAGARD LIQUID [Suspect]
     Indication: IMMUNODEFICIENCY
     Route: 065
     Dates: start: 20080925, end: 20080925
  3. GAMMAGARD LIQUID [Suspect]
     Indication: INFECTION
     Route: 065
     Dates: start: 20080925, end: 20080925

REACTIONS (1)
  - HYPERSENSITIVITY [None]
